FAERS Safety Report 10235048 (Version 2)
Quarter: 2014Q2

REPORT INFORMATION
  Report Type: Report from Study
  Country: CA (occurrence: CA)
  Receive Date: 20140613
  Receipt Date: 20140613
  Transmission Date: 20141212
  Serious: Yes (Hospitalization, Other)
  Sender: FDA-Public Use
  Company Number: PHHY2013CA100354

PATIENT
  Age: 39 Year
  Sex: Male

DRUGS (12)
  1. EXJADE [Suspect]
     Indication: IRON OVERLOAD
     Dosage: UNK
     Route: 048
  2. EXJADE [Suspect]
     Dosage: 500 MG, (TWO TO THREE TIMES PER WEEK)
     Route: 048
  3. EXJADE [Suspect]
     Dosage: 500 MG, QD
     Route: 048
     Dates: start: 201209
  4. EXJADE [Suspect]
     Dosage: 500 MG, TIW
     Route: 048
  5. INSULIN [Concomitant]
     Dosage: UNK UKN, UNK
  6. VITAMIN D [Concomitant]
     Dosage: UNK UKN, UNK
  7. GRAVOL [Concomitant]
     Dosage: UNK UKN, PRN
  8. MAXERAN [Concomitant]
     Dosage: UNK UKN, UNK
  9. CHEMOTHERAPEUTICS [Concomitant]
     Indication: LYMPHOPROLIFERATIVE DISORDER
     Dosage: UNK UKN, UNK
  10. OXYCODONE [Concomitant]
     Dosage: UNK UKN, UNK
  11. PREDNISONE [Concomitant]
  12. ANTIBIOTICS [Concomitant]

REACTIONS (14)
  - Metastases to lung [Unknown]
  - Cardiac neoplasm unspecified [Unknown]
  - Lower respiratory tract infection [Unknown]
  - Palpitations [Unknown]
  - Oxygen saturation decreased [Unknown]
  - Diarrhoea [Recovering/Resolving]
  - Hypersensitivity [Unknown]
  - Urticaria [Recovered/Resolved]
  - Retching [Not Recovered/Not Resolved]
  - Weight decreased [Unknown]
  - Swelling [Unknown]
  - Rash morbilliform [Recovered/Resolved]
  - Nausea [Unknown]
  - Frequent bowel movements [Recovering/Resolving]
